FAERS Safety Report 4431140-9 (Version None)
Quarter: 2004Q3

REPORT INFORMATION
  Report Type: 
  Country: None (occurrence: None)
  Receive Date: 20040824
  Receipt Date: 20040818
  Transmission Date: 20050211
  Serious: Yes (Other)
  Sender: FDA-Public Use
  Company Number: PHBS2004ZA10871

PATIENT
  Sex: Female

DRUGS (1)
  1. DESERIL [Suspect]
     Indication: PAIN
     Route: 048

REACTIONS (2)
  - PEPTIC ULCER HAEMORRHAGE [None]
  - SURGERY [None]
